FAERS Safety Report 4322588-1 (Version None)
Quarter: 2004Q1

REPORT INFORMATION
  Report Type: 
  Country: None (occurrence: None)
  Receive Date: 20040319
  Receipt Date: 20031211
  Transmission Date: 20041129
  Serious: Yes (Hospitalization, Other)
  Sender: FDA-Public Use
  Company Number: US-JNJFOC-20031100066

PATIENT
  Age: 29 Year
  Sex: Female
  Weight: 80.7403 kg

DRUGS (2)
  1. ORTHO EVRA [Suspect]
     Indication: MENORRHAGIA
     Dosage: 1 DOSE(S), 3 IN 4 WEEK
     Dates: start: 20030819, end: 20031015
  2. TOPRAL (SULTOPRIDE) [Concomitant]

REACTIONS (1)
  - TRANSIENT ISCHAEMIC ATTACK [None]
